FAERS Safety Report 20424624 (Version 1)
Quarter: 2022Q1

REPORT INFORMATION
  Report Type: Other
  Country: US (occurrence: None)
  Receive Date: 20220203
  Receipt Date: 20220203
  Transmission Date: 20220423
  Serious: No
  Sender: FDA-Public Use
  Company Number: US-ROCHE-3009951

PATIENT
  Age: 59 Year
  Sex: Female
  Weight: 81.720 kg

DRUGS (14)
  1. OCREVUS [Suspect]
     Active Substance: OCRELIZUMAB
     Indication: Multiple sclerosis
     Dosage: 300 MG ONCE IN 2 WEEKS
     Route: 042
  2. ALBUTEROL [Concomitant]
     Active Substance: ALBUTEROL
  3. AMANTADINE [Concomitant]
     Active Substance: AMANTADINE
  4. ADDERALL [Concomitant]
     Active Substance: AMPHETAMINE ASPARTATE\AMPHETAMINE SULFATE\DEXTROAMPHETAMINE SACCHARATE\DEXTROAMPHETAMINE SULFATE
  5. VITAMIN C [Concomitant]
     Active Substance: ASCORBIC ACID
  6. ASPIRIN [Concomitant]
     Active Substance: ASPIRIN
  7. CALCIUM [Concomitant]
     Active Substance: CALCIUM
  8. COENZYME Q10 [Concomitant]
     Active Substance: DIETARY SUPPLEMENT\UBIDECARENONE
  9. CYMBALTA [Concomitant]
     Active Substance: DULOXETINE HYDROCHLORIDE
  10. PROZAC [Concomitant]
     Active Substance: FLUOXETINE HYDROCHLORIDE
  11. FLONASE [Concomitant]
     Active Substance: FLUTICASONE PROPIONATE
  12. COREG [Concomitant]
     Active Substance: CARVEDILOL
  13. LOSARTAN [Concomitant]
     Active Substance: LOSARTAN
  14. LIPITOR [Concomitant]
     Active Substance: ATORVASTATIN CALCIUM

REACTIONS (1)
  - COVID-19 [Not Recovered/Not Resolved]

NARRATIVE: CASE EVENT DATE: 20211229
